FAERS Safety Report 18918396 (Version 16)
Quarter: 2022Q2

REPORT INFORMATION
  Report Type: Spontaneous
  Country: CA (occurrence: CA)
  Receive Date: 20210220
  Receipt Date: 20220404
  Transmission Date: 20220721
  Serious: Yes (Hospitalization, Other)
  Sender: FDA-Public Use
  Company Number: CA-CELLTRION INC.-2021CA000898

PATIENT

DRUGS (22)
  1. INFLECTRA [Suspect]
     Active Substance: INFLIXIMAB-DYYB
     Indication: Colitis ulcerative
     Dosage: 700 MG (5.74 MG/KG) HOSPITAL START, WEEK 0
     Route: 042
     Dates: start: 20210115, end: 20210115
  2. INFLECTRA [Suspect]
     Active Substance: INFLIXIMAB-DYYB
     Dosage: 700 MG IN HOSPITAL (5.74 MG/KG, SECOND DOSE)
     Route: 042
     Dates: start: 20210118, end: 20210118
  3. INFLECTRA [Suspect]
     Active Substance: INFLIXIMAB-DYYB
     Dosage: 1200 MG (THIRD DOSE)
     Route: 042
     Dates: start: 20210122, end: 20210122
  4. INFLECTRA [Suspect]
     Active Substance: INFLIXIMAB-DYYB
     Dosage: 1200 MG, EVERY 4 WEEKS
     Route: 042
     Dates: start: 20210202, end: 20210305
  5. INFLECTRA [Suspect]
     Active Substance: INFLIXIMAB-DYYB
     Dosage: 1200 MG, EVERY 4 WEEKS
     Route: 042
     Dates: start: 20210303
  6. INFLECTRA [Suspect]
     Active Substance: INFLIXIMAB-DYYB
     Dosage: 1200 MG, EVERY 4 WEEKS
     Route: 042
     Dates: start: 20210305
  7. INFLECTRA [Suspect]
     Active Substance: INFLIXIMAB-DYYB
     Dosage: (MID CYCLE RESCUE DOSE)
     Route: 042
     Dates: start: 20210319
  8. INFLECTRA [Suspect]
     Active Substance: INFLIXIMAB-DYYB
     Dosage: 1200 MG, MID CYCLE RESCUE DOSE(SCHEDULED FOR 19MAR2021), THEN Q 2 WEEKS DOSE, THEN Q 4 WEEKS
     Route: 041
     Dates: start: 20210319, end: 20210903
  9. INFLECTRA [Suspect]
     Active Substance: INFLIXIMAB-DYYB
     Dosage: 1200 MG MID CYCLE RESCUE DOSE (SCHEDULED FOR 19MAR2021), THEN EVERY 2 WEEKS DOSE, THEN EVERY 4 WEEKS
     Route: 042
     Dates: start: 20210331
  10. INFLECTRA [Suspect]
     Active Substance: INFLIXIMAB-DYYB
     Dosage: 1200 MG MID CYCLE RESCUE DOSE, THEN EVERY 2 WEEKS DOSE, THEN EVERY 4 WEEKS
     Route: 042
     Dates: start: 20210430
  11. INFLECTRA [Suspect]
     Active Substance: INFLIXIMAB-DYYB
     Dosage: 1200 MG MID CYCLE RESCUE DOSE, THEN EVERY 2 WEEKS DOSE, THEN EVERY 4 WEEKS
     Route: 042
     Dates: start: 20210528
  12. INFLECTRA [Suspect]
     Active Substance: INFLIXIMAB-DYYB
     Dosage: 1200 MG MID CYCLE RESCUE DOSE, THEN EVERY 2 WEEKS DOSE, THEN EVERY 4 WEEKS
     Route: 042
     Dates: start: 20210625
  13. INFLECTRA [Suspect]
     Active Substance: INFLIXIMAB-DYYB
     Dosage: 1200 MG MID CYCLE RESCUE DOSE, THEN EVERY 2 WEEKS DOSE, THEN EVERY 4 WEEKS
     Route: 042
     Dates: start: 20210712
  14. INFLECTRA [Suspect]
     Active Substance: INFLIXIMAB-DYYB
     Dosage: 1200 MG MID CYCLE RESCUE DOSE, THEN EVERY 2 WEEKS DOSE, THEN EVERY 4 WEEKS
     Route: 042
     Dates: start: 20210903, end: 20210903
  15. PANTOPRAZOLE [Concomitant]
     Active Substance: PANTOPRAZOLE
     Dosage: 40 MG, 1X/DAY
  16. PREDNISONE [Concomitant]
     Active Substance: PREDNISONE
     Dosage: 40 MG, 1X/DAY (40MG WEEKLY TAPERING DOSE)
     Route: 048
  17. SOLU-MEDROL [Concomitant]
     Active Substance: METHYLPREDNISOLONE SODIUM SUCCINATE
     Dosage: UNK
  18. SYMBIOTIK [AMOXICILLIN TRIHYDRATE;BACILLUS COAGULANS;CLOXACILLIN SODIU [Concomitant]
     Dosage: 1 DF
  19. ZOPICLONE [Concomitant]
     Active Substance: ZOPICLONE
     Dosage: 7.5 MG, DAILY
  20. ZOPICLONE [Concomitant]
     Active Substance: ZOPICLONE
     Dosage: 7.5 MG, DAILY
  21. ZOPICLONE [Concomitant]
     Active Substance: ZOPICLONE
     Dosage: 7.5 MG, DAILY
  22. ZOPICLONE [Concomitant]
     Active Substance: ZOPICLONE
     Dosage: 7.5 MG DAILY

REACTIONS (14)
  - Hospitalisation [Unknown]
  - Illness [Unknown]
  - Weight decreased [Not Recovered/Not Resolved]
  - Drug ineffective [Unknown]
  - Off label use [Unknown]
  - Off label use [Unknown]
  - Inappropriate schedule of product administration [Unknown]
  - General physical health deterioration [Not Recovered/Not Resolved]
  - Mobility decreased [Not Recovered/Not Resolved]
  - Vein disorder [Unknown]
  - Body temperature increased [Recovered/Resolved]
  - Peripheral venous disease [Unknown]
  - Malaise [Unknown]
  - Condition aggravated [Not Recovered/Not Resolved]

NARRATIVE: CASE EVENT DATE: 20210101
